FAERS Safety Report 8173196-6 (Version None)
Quarter: 2012Q1

REPORT INFORMATION
  Report Type: 
  Country: None (occurrence: None)
  Receive Date: 20120229
  Receipt Date: 20110722
  Transmission Date: 20120608
  Serious: No
  Sender: FDA-Public Use
  Company Number: US-GLAXOSMITHKLINE-A0938019A

PATIENT
  Age: 40 Year
  Sex: Female
  Weight: 65.9 kg

DRUGS (2)
  1. IMITREX [Suspect]
     Indication: MIGRAINE
     Dosage: 6MG SINGLE DOSE
     Route: 058
     Dates: start: 20110722
  2. NO CONCURRENT MEDICATION [Concomitant]

REACTIONS (4)
  - SWELLING [None]
  - ERYTHEMA [None]
  - PAIN [None]
  - DRUG ADMINISTRATION ERROR [None]
